FAERS Safety Report 4634235-X (Version None)
Quarter: 2005Q2

REPORT INFORMATION
  Report Type: 
  Country: None (occurrence: None)
  Receive Date: 20050413
  Receipt Date: 20050127
  Transmission Date: 20051028
  Serious: Yes (Hospitalization)
  Sender: FDA-Public Use
  Company Number: PHEH2005US01390

PATIENT
  Age: 60 Year
  Sex: Male
  Weight: 126 kg

DRUGS (5)
  1. DIOVAN HCT [Suspect]
     Indication: HYPERTENSION
     Dosage: 1 DF, BID
     Route: 048
     Dates: start: 20021101
  2. COREG [Concomitant]
  3. PREVACID [Concomitant]
  4. NORVASC [Concomitant]
     Indication: HYPERTENSION
  5. COUMADIN [Concomitant]

REACTIONS (6)
  - BLOOD POTASSIUM DECREASED [None]
  - CEREBROVASCULAR ACCIDENT [None]
  - HYPOKALAEMIA [None]
  - LIMB DISCOMFORT [None]
  - PYREXIA [None]
  - VIRAL INFECTION [None]
